FAERS Safety Report 8352844-1 (Version None)
Quarter: 2012Q2

REPORT INFORMATION
  Report Type: 
  Country: None (occurrence: None)
  Receive Date: 20120511
  Receipt Date: 20120509
  Transmission Date: 20120825
  Serious: No
  Sender: FDA-Public Use
  Company Number: FI-SANOFI-AVENTIS-2011SA038350

PATIENT
  Age: 19 Year
  Sex: Female
  Weight: 58 kg

DRUGS (2)
  1. ARAVA [Suspect]
     Indication: ARTHRITIS
     Dosage: STRENGTH: 20 MG
     Route: 048
     Dates: start: 20041101, end: 20090901
  2. ARAVA [Suspect]
     Dosage: PATIENT USED ALTOGETHER APPROXIMATELY 4 TABLETS DURING FEBURARY-MARCH 2011STRENGTH: 20 MG
     Route: 048
     Dates: start: 20110201, end: 20110301

REACTIONS (1)
  - MATERNAL EXPOSURE DURING PREGNANCY [None]
